FAERS Safety Report 13399966 (Version 1)
Quarter: 2017Q2

REPORT INFORMATION
  Report Type: Spontaneous
  Country: US (occurrence: US)
  Receive Date: 20170404
  Receipt Date: 20170404
  Transmission Date: 20170830
  Serious: Yes (Life-Threatening, Hospitalization)
  Sender: FDA-Public Use
  Company Number: None

PATIENT
  Sex: Female

DRUGS (23)
  1. COPAXONE [Concomitant]
     Active Substance: GLATIRAMER ACETATE
  2. MULTI B-FORTE [Concomitant]
     Active Substance: ASCORBIC ACID\NIACINAMIDE\PYRIDOXINE HYDROCHLORIDE\RIBOFLAVIN\THIAMINE HYDROCHLORIDE
  3. ACIDOPHILUS [Concomitant]
     Active Substance: LACTOBACILLUS ACIDOPHILUS
  4. SUPER BRAIN [Concomitant]
  5. WHEELCHAIR [Concomitant]
     Active Substance: DEVICE
  6. GARLIC. [Concomitant]
     Active Substance: GARLIC
  7. METABOUP PLUS [Concomitant]
  8. NUCYNTA [Concomitant]
     Active Substance: TAPENTADOL HYDROCHLORIDE
  9. TIZANADINE [Concomitant]
     Active Substance: TIZANIDINE
  10. VITAMIN E [Concomitant]
     Active Substance: .ALPHA.-TOCOPHEROL
  11. VITAMIN D3 [Concomitant]
     Active Substance: CHOLECALCIFEROL
  12. TYLENOL [Concomitant]
     Active Substance: ACETAMINOPHEN
  13. ALBUTEROL INHALER [Concomitant]
     Active Substance: ALBUTEROL
  14. NASONEX [Concomitant]
     Active Substance: MOMETASONE FUROATE
  15. VITAMIN [Concomitant]
     Active Substance: VITAMINS
  16. MULTI VITAMIN [Concomitant]
     Active Substance: VITAMINS
  17. IBUPROFEN. [Suspect]
     Active Substance: IBUPROFEN
     Indication: PAIN
  18. BACK BRACES [Concomitant]
  19. CANE [Concomitant]
  20. C-PAP MACHINE [Concomitant]
     Active Substance: DEVICE
  21. TEA [Concomitant]
     Active Substance: TEA LEAF
  22. SUDAFED [Concomitant]
     Active Substance: PSEUDOEPHEDRINE HYDROCHLORIDE
  23. C [Concomitant]

REACTIONS (6)
  - Haemorrhage urinary tract [None]
  - Chest pain [None]
  - Asthma [None]
  - Panic attack [None]
  - Gastrointestinal haemorrhage [None]
  - Quality of life decreased [None]
